FAERS Safety Report 10229597 (Version 3)
Quarter: 2014Q3

REPORT INFORMATION
  Report Type: Spontaneous
  Country: RU (occurrence: RU)
  Receive Date: 20140611
  Receipt Date: 20140721
  Transmission Date: 20150326
  Serious: Yes (Hospitalization)
  Sender: FDA-Public Use
  Company Number: RU-SA-2014SA072010

PATIENT
  Age: 33 Year
  Sex: Male
  Weight: 67 kg

DRUGS (6)
  1. CARDIOMAGNYL [Concomitant]
     Active Substance: ASPIRIN\MAGNESIUM HYDROXIDE
     Dosage: STRENGTH: ACETYLSALICYLIC ACID 75 MG+MAGNESIUM HYDROXIDE 15,2 MG
     Route: 048
     Dates: start: 20140401
  2. FABRAZYME [Suspect]
     Active Substance: AGALSIDASE BETA
     Indication: FABRY^S DISEASE
     Dosage: 70 MG
     Route: 042
     Dates: start: 20140319
  3. ASPIRIN. [Concomitant]
     Active Substance: ASPIRIN
     Dosage: STRENGTH: 125 MG
     Route: 048
     Dates: start: 20140319, end: 20140331
  4. FRAGMIN [Concomitant]
     Active Substance: DALTEPARIN SODIUM
     Dosage: 5000 ME
     Dates: start: 20140530, end: 20140609
  5. CITICOLINE [Concomitant]
     Active Substance: CITICOLINE
     Indication: CEREBROVASCULAR INSUFFICIENCY
     Dosage: STRENGTH: 500 MG-4ML
     Route: 048
     Dates: start: 20130705
  6. ATORVASTATIN [Concomitant]
     Active Substance: ATORVASTATIN
     Route: 048
     Dates: start: 20140530

REACTIONS (5)
  - Speech disorder [Recovering/Resolving]
  - Headache [Recovering/Resolving]
  - Cerebrovascular accident [Recovering/Resolving]
  - Dizziness [Recovering/Resolving]
  - Hemiparesis [Recovering/Resolving]

NARRATIVE: CASE EVENT DATE: 20140530
